FAERS Safety Report 10676335 (Version 3)
Quarter: 2015Q1

REPORT INFORMATION
  Report Type: Spontaneous
  Country: JP (occurrence: JP)
  Receive Date: 20141226
  Receipt Date: 20150210
  Transmission Date: 20150720
  Serious: Yes (Other)
  Sender: FDA-Public Use
  Company Number: JP-ROCHE-1514353

PATIENT
  Age: 80 Year
  Sex: Female

DRUGS (11)
  1. BAYASPIRIN [Concomitant]
     Active Substance: ASPIRIN
  2. LOXONIN [Concomitant]
     Active Substance: LOXOPROFEN SODIUM
  3. METHYCOBAL [Concomitant]
     Active Substance: METHYLCOBALAMIN
     Route: 065
  4. RHEUMATREX [Concomitant]
     Active Substance: METHOTREXATE SODIUM
     Route: 065
  5. FAMOTIDINE. [Concomitant]
     Active Substance: FAMOTIDINE
     Route: 065
  6. TRAMCET [Concomitant]
     Active Substance: ACETAMINOPHEN\TRAMADOL
     Route: 065
  7. CARNACULIN [Concomitant]
     Active Substance: KALLIDINOGENASE
  8. LUCENTIS [Suspect]
     Active Substance: RANIBIZUMAB
     Indication: RETINAL VEIN OCCLUSION
     Route: 050
     Dates: start: 20140617, end: 20140617
  9. ADONA (JAPAN) [Concomitant]
  10. MEDROL [Concomitant]
     Active Substance: METHYLPREDNISOLONE
     Route: 065
  11. OPALMON [Concomitant]
     Active Substance: LIMAPROST
     Route: 065

REACTIONS (8)
  - Visual acuity reduced [Unknown]
  - Retinal haemorrhage [Unknown]
  - Iris neovascularisation [Not Recovered/Not Resolved]
  - Vitreous haemorrhage [Unknown]
  - Macular oedema [Unknown]
  - Retinal vein occlusion [Unknown]
  - Retinal ischaemia [Not Recovered/Not Resolved]
  - Retinal vascular disorder [Not Recovered/Not Resolved]

NARRATIVE: CASE EVENT DATE: 20140714
